FAERS Safety Report 4569675-0 (Version None)
Quarter: 2005Q1

REPORT INFORMATION
  Report Type: 
  Country: None (occurrence: None)
  Receive Date: 20050201
  Receipt Date: 20050121
  Transmission Date: 20050727
  Serious: Yes (Hospitalization)
  Sender: FDA-Public Use
  Company Number: 2005JP000161

PATIENT
  Age: 5 Year
  Sex: Female
  Weight: 13.3 kg

DRUGS (7)
  1. TACROLIMUS INJECTION (TACROLIMUS INJECTION)(TACROLIMUS) INJECTION [Suspect]
     Indication: RENAL TRANSPLANT
     Dosage: 0.70 MG  INTRAVENOUS
     Route: 042
     Dates: start: 20011106, end: 20011107
  2. METHYLPREDNISOLONE [Concomitant]
  3. MYCOPHENOLATE MOFETIL (MYCOPHENOLATE MOFETIL) [Concomitant]
  4. MIZORBINE (MIZORBINE) [Concomitant]
  5. DENOSINE ^TANABE^ (GANCICLOVIR) [Concomitant]
  6. CEFAZOLIN SODIUM [Concomitant]
  7. KEITEN (CEFPIROME SULFATE) [Concomitant]

REACTIONS (3)
  - BLOOD UREA INCREASED [None]
  - RENAL INJURY [None]
  - TRANSPLANT ABSCESS [None]
